FAERS Safety Report 6468149-X (Version None)
Quarter: 2009Q4

REPORT INFORMATION
  Report Type: 
  Country: None (occurrence: None)
  Receive Date: 20091202
  Receipt Date: 20091022
  Transmission Date: 20100525
  Serious: Yes (Death)
  Sender: FDA-Public Use
  Company Number: CA-VALEANT-2009VX002233

PATIENT
  Age: 75 Year
  Sex: Female

DRUGS (12)
  1. NITRAZADON [Suspect]
     Indication: DRUG USE FOR UNKNOWN INDICATION
     Route: 065
  2. METFORMIN HCL [Suspect]
     Indication: DRUG USE FOR UNKNOWN INDICATION
     Route: 065
  3. ALENDRONATE [Suspect]
     Indication: DRUG USE FOR UNKNOWN INDICATION
     Route: 065
  4. COMBIVENT [Suspect]
     Indication: DRUG USE FOR UNKNOWN INDICATION
     Route: 055
  5. FLOVENT [Suspect]
     Indication: DRUG USE FOR UNKNOWN INDICATION
     Route: 065
  6. LASIX [Suspect]
     Indication: DRUG USE FOR UNKNOWN INDICATION
     Route: 065
  7. LIPITOR [Suspect]
     Indication: DRUG USE FOR UNKNOWN INDICATION
     Route: 065
  8. LOSEC [Suspect]
     Indication: DRUG USE FOR UNKNOWN INDICATION
     Route: 065
  9. PLAQUENIL [Suspect]
     Indication: DRUG USE FOR UNKNOWN INDICATION
     Route: 065
  10. PREDNISONE [Suspect]
     Indication: DRUG USE FOR UNKNOWN INDICATION
     Route: 065
  11. SEREVENT [Suspect]
     Indication: DRUG USE FOR UNKNOWN INDICATION
     Route: 065
  12. TYLENOL (CAPLET) [Suspect]
     Indication: DRUG USE FOR UNKNOWN INDICATION
     Route: 065

REACTIONS (1)
  - CHEST DISCOMFORT [None]
